FAERS Safety Report 8596820-2 (Version None)
Quarter: 2012Q3

REPORT INFORMATION
  Report Type: 
  Country: None (occurrence: None)
  Receive Date: 20120815
  Receipt Date: 20120801
  Transmission Date: 20120928
  Serious: Yes (Other)
  Sender: FDA-Public Use
  Company Number: DE-ARROW-2012-14305

PATIENT
  Sex: Female

DRUGS (5)
  1. VALSARTAN [Suspect]
     Indication: TYPE 2 DIABETES MELLITUS
     Dosage: UNK
     Route: 065
  2. NATEGLINIDE [Suspect]
     Indication: TYPE 2 DIABETES MELLITUS
     Dosage: UNK
     Route: 065
  3. AMLODIPINE [Suspect]
     Indication: PRODUCT USED FOR UNKNOWN INDICATION
     Dosage: UNK
     Route: 065
  4. NATEGLINIDE [Suspect]
     Indication: CARDIOVASCULAR DISORDER
  5. VALSARTAN [Suspect]
     Indication: CARDIOVASCULAR DISORDER

REACTIONS (4)
  - RENAL CELL CARCINOMA [None]
  - ISCHAEMIC STROKE [None]
  - CACHEXIA [None]
  - INFECTION SUSCEPTIBILITY INCREASED [None]
